FAERS Safety Report 7373715-3 (Version None)
Quarter: 2011Q1

REPORT INFORMATION
  Report Type: 
  Country: None (occurrence: None)
  Receive Date: 20110325
  Receipt Date: 20110310
  Transmission Date: 20110831
  Serious: Yes (Other)
  Sender: FDA-Public Use
  Company Number: FR-JNJFOC-20110305675

PATIENT
  Sex: Female

DRUGS (7)
  1. REMICADE [Suspect]
     Route: 042
  2. POLARAMINE [Concomitant]
     Indication: PREMEDICATION
  3. CORTISONE [Concomitant]
     Indication: PREMEDICATION
  4. REMICADE [Suspect]
     Indication: CROHN'S DISEASE
     Route: 042
  5. REMICADE [Suspect]
     Route: 042
  6. HYDROCORTISONE [Concomitant]
     Indication: PREMEDICATION
  7. REMICADE [Suspect]
     Indication: ANKYLOSING SPONDYLITIS
     Route: 042

REACTIONS (4)
  - TYPE IV HYPERSENSITIVITY REACTION [None]
  - RASH ERYTHEMATOUS [None]
  - PYREXIA [None]
  - DYSARTHRIA [None]
